FAERS Safety Report 10147017 (Version 1)
Quarter: 2014Q2

REPORT INFORMATION
  Report Type: Spontaneous
  Country: BE (occurrence: BE)
  Receive Date: 20140501
  Receipt Date: 20140501
  Transmission Date: 20141212
  Serious: Yes (Life-Threatening, Disabling)
  Sender: FDA-Public Use
  Company Number: BE-GLAXOSMITHKLINE-B0989916A

PATIENT
  Sex: Male
  Weight: 90 kg

DRUGS (3)
  1. ZINACEF [Suspect]
     Indication: PRODUCT USED FOR UNKNOWN INDICATION
     Route: 065
  2. AMOXICLAV [Suspect]
     Indication: PRODUCT USED FOR UNKNOWN INDICATION
     Route: 048
  3. GRAPEFRUIT JUICE [Concomitant]

REACTIONS (7)
  - Anaphylactic shock [Unknown]
  - Hypersensitivity [Unknown]
  - Resuscitation [Unknown]
  - Sensory loss [Unknown]
  - Hiccups [Unknown]
  - Nausea [Unknown]
  - Diarrhoea [Unknown]
